FAERS Safety Report 19375945 (Version 1)
Quarter: 2021Q2

REPORT INFORMATION
  Report Type: Spontaneous
  Country: US (occurrence: US)
  Receive Date: 20210604
  Receipt Date: 20210604
  Transmission Date: 20210717
  Serious: Yes (Other)
  Sender: FDA-Public Use
  Company Number: US-PROCTER_AND_GAMBLE-GS20144641

PATIENT
  Age: 69 Year
  Sex: Male
  Weight: 83.9 kg

DRUGS (6)
  1. CREST PRO?HEALTH ADVANCED W/EXTRA WHITENING [Suspect]
     Active Substance: SODIUM FLUORIDE
     Indication: BREATH ODOUR
     Dosage: CAPFUL, 1?2 /DAY
     Route: 002
     Dates: start: 20201204, end: 20201214
  2. VITAMINS [Concomitant]
     Active Substance: VITAMINS
  3. BLOOD PRESSURE MEDICINE [Concomitant]
     Active Substance: UNSPECIFIED INGREDIENT
  4. TOOTHPASTE [Concomitant]
     Active Substance: UNSPECIFIED INGREDIENT
  5. METFORMIN [Concomitant]
     Active Substance: METFORMIN HYDROCHLORIDE
  6. CHOLESTEROL MEDICINE [Concomitant]
     Active Substance: UNSPECIFIED INGREDIENT

REACTIONS (15)
  - Toothache [Unknown]
  - Tooth disorder [Not Recovered/Not Resolved]
  - Gingival disorder [Not Recovered/Not Resolved]
  - Oral infection [Unknown]
  - Mouth ulceration [Unknown]
  - Percussion test abnormal [Unknown]
  - Oral pain [Unknown]
  - Gingival blister [Recovered/Resolved]
  - Tooth fracture [Recovered/Resolved]
  - Dental fistula [Unknown]
  - Hypersensitivity [Unknown]
  - Oral mucosal blistering [Recovered/Resolved]
  - Oral discomfort [Unknown]
  - Tongue blistering [Recovered/Resolved]
  - Stomatitis [Unknown]

NARRATIVE: CASE EVENT DATE: 202012
